FAERS Safety Report 18618823 (Version 3)
Quarter: 2021Q1

REPORT INFORMATION
  Report Type: Spontaneous
  Country: US (occurrence: US)
  Receive Date: 20201215
  Receipt Date: 20210217
  Transmission Date: 20210419
  Serious: Yes (Hospitalization, Other)
  Sender: FDA-Public Use
  Company Number: US-CATALYST PHARMACEUTICALS, INC-2020CAT00599

PATIENT
  Age: 76 Year
  Sex: Male

DRUGS (22)
  1. FIRDAPSE [Suspect]
     Active Substance: AMIFAMPRIDINE PHOSPHATE
     Indication: MYASTHENIC SYNDROME
     Dosage: 20 MG, 3X/DAY
     Route: 048
     Dates: start: 202002
  2. ELIQUIS [Concomitant]
     Active Substance: APIXABAN
     Dosage: 5 MG, EVERY 12 HOURS
     Route: 048
  3. ATORVASTATIN [Concomitant]
     Active Substance: ATORVASTATIN
     Dosage: 40 MG, 1X/DAY AT BEDTIME
     Route: 048
  4. LEVOCETIRIZINE [Concomitant]
     Active Substance: LEVOCETIRIZINE
     Dosage: 5 MG, 1X/DAY AT BEDTIME
     Route: 048
  5. LASIX [Concomitant]
     Active Substance: FUROSEMIDE
     Dosage: 40 MG, 2X/DAY HOLD IF BP LESS THAN 100/60
  6. PANTOPRAZOLE DR (DELAYED?RELEASE) [Concomitant]
     Dosage: 40 MG, 2X/DAY
     Route: 048
  7. METFORMIN [Concomitant]
     Active Substance: METFORMIN HYDROCHLORIDE
     Dosage: 500 MG, 2X/DAY
     Route: 048
  8. FERROUS SULFATE. [Concomitant]
     Active Substance: FERROUS SULFATE
     Dosage: 325 MG, 2X/DAY
     Route: 048
  9. PREDNISONE. [Concomitant]
     Active Substance: PREDNISONE
     Dosage: 5 MG, (0.5 TABLET) 1X/DAY
     Route: 048
  10. GAMMAPLEX [Concomitant]
     Active Substance: HUMAN IMMUNOGLOBULIN G
     Dosage: UNK, 1X/MONTH
     Route: 042
  11. TAMSULOSIN HYDROCHLORIDE ER (EXTENDED RELEASE) [Concomitant]
     Dosage: 0.4 MG, 1X/DAY
     Route: 048
  12. CYANOCOBALAMIN. [Concomitant]
     Active Substance: CYANOCOBALAMIN
     Dosage: 1000 ?G, 1X/DAY
     Route: 048
  13. ASPIRIN EC (ENTERIC COATED) [Concomitant]
     Dosage: 81 MG, 1X/DAY
     Route: 048
  14. CLONAZEPAM. [Concomitant]
     Active Substance: CLONAZEPAM
     Dosage: 0.5 MG, AT BEDTIME, AS NEEDED
     Route: 048
  15. SERTRALINE [Concomitant]
     Active Substance: SERTRALINE HYDROCHLORIDE
     Dosage: 50 MG, 1X/DAY AT BEDTIME
     Route: 048
  16. MELATONIN [Concomitant]
     Active Substance: MELATONIN
     Dosage: 10 MG, 1X/DAY AT BEDTIME
     Route: 048
  17. METOPROLOL TARTRATE. [Concomitant]
     Active Substance: METOPROLOL TARTRATE
     Dosage: 50 MG, 2X/DAY
     Route: 048
  18. GLIMEPRIDIE [Concomitant]
     Dosage: 2 MG, AS NEEDED FOR BLOOD SUGAR (150 OR ABOVE)
     Route: 048
  19. MEMANTINE. [Concomitant]
     Active Substance: MEMANTINE
     Dosage: 5 MG, 2X/DAY
     Route: 048
  20. POTASSIUM CHLORIDE ER (EXTENDED RELEASE) [Concomitant]
     Dosage: 10 MEQ, 3X/DAY
     Route: 048
  21. PYRIDOSTIGMINE [Concomitant]
     Active Substance: PYRIDOSTIGMINE
     Dosage: 30 MG, 2X/DAY
     Route: 048
  22. LOSARTAN. [Concomitant]
     Active Substance: LOSARTAN
     Dosage: 50 MG, 1X/DAY HOLD IF BP LESS THAN 110
     Route: 048

REACTIONS (13)
  - Cardiac failure [Not Recovered/Not Resolved]
  - Pallor [Recovering/Resolving]
  - Atrial fibrillation [Recovering/Resolving]
  - Balance disorder [Recovered/Resolved]
  - Hypokalaemia [Unknown]
  - Mental status changes [Recovered/Resolved]
  - Fall [Recovered/Resolved]
  - Asthenia [Not Recovered/Not Resolved]
  - Urinary tract infection [Not Recovered/Not Resolved]
  - Lung opacity [Unknown]
  - Acute respiratory failure [Recovering/Resolving]
  - Restlessness [Recovering/Resolving]
  - Hypertension [Recovered/Resolved]

NARRATIVE: CASE EVENT DATE: 2020
